FAERS Safety Report 17443178 (Version 1)
Quarter: 2020Q1

REPORT INFORMATION
  Report Type: Spontaneous
  Country: ES (occurrence: ES)
  Receive Date: 20200221
  Receipt Date: 20200221
  Transmission Date: 20200409
  Serious: Yes (Other)
  Sender: FDA-Public Use
  Company Number: ES-AUROBINDO-AUR-APL-2020-009067

PATIENT
  Age: 73 Year
  Sex: Male

DRUGS (1)
  1. GABAPENTIN HARD CAPSULES 300MG [Suspect]
     Active Substance: GABAPENTIN
     Indication: ARTHRALGIA
     Dosage: 300 MILLIGRAM, ONCE A DAY
     Route: 048
     Dates: start: 20200127

REACTIONS (3)
  - Dizziness [Not Recovered/Not Resolved]
  - Ataxia [Not Recovered/Not Resolved]
  - Depressed level of consciousness [Not Recovered/Not Resolved]

NARRATIVE: CASE EVENT DATE: 20200128
